FAERS Safety Report 12166891 (Version 2)
Quarter: 2016Q1

REPORT INFORMATION
  Report Type: Report from Study
  Country: US (occurrence: US)
  Receive Date: 20160310
  Receipt Date: 20160323
  Transmission Date: 20160526
  Serious: Yes (Hospitalization)
  Sender: FDA-Public Use
  Company Number: US-UCBSA-2016008306

PATIENT
  Age: 16 Year
  Sex: Female

DRUGS (2)
  1. LACOSAMIDE [Suspect]
     Active Substance: LACOSAMIDE
     Indication: SEIZURE
     Dosage: UNK
  2. LACOSAMIDE [Suspect]
     Active Substance: LACOSAMIDE
     Dosage: BEING TAPERED OFF

REACTIONS (3)
  - Off label use [Unknown]
  - Muscular weakness [Unknown]
  - Movement disorder [Unknown]

NARRATIVE: CASE EVENT DATE: 201602
